FAERS Safety Report 24658486 (Version 3)
Quarter: 2025Q3

REPORT INFORMATION
  Report Type: Report from Study
  Country: CA (occurrence: CA)
  Receive Date: 20241125
  Receipt Date: 20250924
  Transmission Date: 20251021
  Serious: Yes (Other)
  Sender: SANOFI AVENTIS
  Company Number: CA-SA-SAC20230907000445

PATIENT
  Age: 66 Year
  Sex: Male

DRUGS (31)
  1. BELUMOSUDIL MESYLATE [Suspect]
     Active Substance: BELUMOSUDIL MESYLATE
     Indication: Chronic graft versus host disease
     Dosage: 200 MG, QD
     Route: 048
     Dates: start: 2023
  2. BELUMOSUDIL MESYLATE [Suspect]
     Active Substance: BELUMOSUDIL MESYLATE
     Dosage: 200 MG, QOD
     Dates: start: 2024
  3. BELUMOSUDIL MESYLATE [Suspect]
     Active Substance: BELUMOSUDIL MESYLATE
     Dosage: 200 MG, BID
     Route: 048
     Dates: start: 20230710
  4. BELUMOSUDIL MESYLATE [Suspect]
     Active Substance: BELUMOSUDIL MESYLATE
     Dosage: 200 MG, QD
     Route: 048
     Dates: start: 20250827
  5. VALACYCLOVIR [Concomitant]
     Active Substance: VALACYCLOVIR HYDROCHLORIDE
     Dosage: 500 MG, BID
  6. DEXAMETHASONE [Concomitant]
     Active Substance: DEXAMETHASONE
     Dosage: UNK, QID
  7. DEXAMETHASONE [Concomitant]
     Active Substance: DEXAMETHASONE
     Dosage: QID
  8. DEXAMETHASONE [Concomitant]
     Active Substance: DEXAMETHASONE
     Dosage: QID
  9. DEXAMETHASONE [Concomitant]
     Active Substance: DEXAMETHASONE
     Dosage: QID
  10. FOLIC ACID [Concomitant]
     Active Substance: FOLIC ACID
     Dosage: 5 MG, BID (5MG DIE)
  11. FOLIC ACID [Concomitant]
     Active Substance: FOLIC ACID
     Dosage: 5MD DIE
  12. FOLIC ACID [Concomitant]
     Active Substance: FOLIC ACID
     Dosage: 5MG, DIE
  13. FOLIC ACID [Concomitant]
     Active Substance: FOLIC ACID
     Dosage: 5MD DIE,
  14. URSODIOL [Concomitant]
     Active Substance: URSODIOL
     Dosage: 500 MG, BID
  15. URSODIOL [Concomitant]
     Active Substance: URSODIOL
     Dosage: 500.000MG BID
  16. URSODIOL [Concomitant]
     Active Substance: URSODIOL
     Dosage: 500MG BID
  17. URSODIOL [Concomitant]
     Active Substance: URSODIOL
     Dosage: 500MG BID
  18. FLUCONAZOLE [Concomitant]
     Active Substance: FLUCONAZOLE
  19. FLUCONAZOLE [Concomitant]
     Active Substance: FLUCONAZOLE
  20. VITAMIN B12 [Concomitant]
     Active Substance: CYANOCOBALAMIN
     Dosage: 1200 MG, BID (1200MG DIE)
  21. VITAMIN B12 [Concomitant]
     Active Substance: CYANOCOBALAMIN
     Dosage: 1200MG DIE
  22. VIT D [VITAMIN D NOS] [Concomitant]
     Dosage: 2000 IU, BID (2000U DIE)
  23. MAGNESIUM OXIDE [Concomitant]
     Active Substance: MAGNESIUM OXIDE
  24. MAGNESIUM OXIDE [Concomitant]
     Active Substance: MAGNESIUM OXIDE
     Dosage: DIE 400MG
  25. MAGNESIUM OXIDE [Concomitant]
     Active Substance: MAGNESIUM OXIDE
     Dosage: DIE 400MG
  26. PANTOPRAZOLE SODIUM [Concomitant]
     Active Substance: PANTOPRAZOLE SODIUM
     Dosage: 40 MG, BID (DIE 40MG)
  27. PANTOPRAZOLE SODIUM [Concomitant]
     Active Substance: PANTOPRAZOLE SODIUM
     Dosage: DIE 40MG
  28. PANTOPRAZOLE SODIUM [Concomitant]
     Active Substance: PANTOPRAZOLE SODIUM
     Dosage: DIE 40MG
  29. PANTOPRAZOLE SODIUM [Concomitant]
     Active Substance: PANTOPRAZOLE SODIUM
     Dosage: 40MG, DIE
  30. RUXOLITINIB [Concomitant]
     Active Substance: RUXOLITINIB
  31. RUXOLITINIB [Concomitant]
     Active Substance: RUXOLITINIB

REACTIONS (10)
  - Suicidal ideation [Recovered/Resolved]
  - Dry eye [Not Recovered/Not Resolved]
  - Therapeutic response decreased [Not Recovered/Not Resolved]
  - Impaired quality of life [Not Recovered/Not Resolved]
  - Myalgia [Recovered/Resolved]
  - Nail disorder [Not Recovered/Not Resolved]
  - Onychoclasis [Not Recovered/Not Resolved]
  - Pulmonary function test decreased [Not Recovered/Not Resolved]
  - Nausea [Not Recovered/Not Resolved]
  - Inappropriate schedule of product administration [Unknown]

NARRATIVE: CASE EVENT DATE: 20230101
